FAERS Safety Report 10645148 (Version 1)
Quarter: 2014Q4

REPORT INFORMATION
  Report Type: Spontaneous
  Country: US (occurrence: None)
  Receive Date: 20141210
  Receipt Date: 20141210
  Transmission Date: 20150529
  Serious: Yes (Hospitalization)
  Sender: FDA-Public Use
  Company Number: None

PATIENT
  Age: 58 Year
  Sex: Female
  Weight: 101.15 kg

DRUGS (1)
  1. BYDUREON [Suspect]
     Active Substance: EXENATIDE
     Indication: DIABETES MELLITUS
     Dosage: 1 VIAL, ONCE A WEEK, INJECTED STOMACH AREA
     Dates: start: 20141005, end: 20141012

REACTIONS (6)
  - Rash [None]
  - Peripheral swelling [None]
  - Abasia [None]
  - Hypoaesthesia [None]
  - Impaired work ability [None]
  - Pain in extremity [None]

NARRATIVE: CASE EVENT DATE: 20141016
